FAERS Safety Report 16366703 (Version 1)
Quarter: 2019Q2

REPORT INFORMATION
  Report Type: Spontaneous
  Country: US (occurrence: US)
  Receive Date: 20190529
  Receipt Date: 20190529
  Transmission Date: 20190711
  Serious: Yes (Hospitalization)
  Sender: FDA-Public Use
  Company Number: US-TEVA-2019-US-1055744

PATIENT
  Age: 37 Year
  Sex: Female

DRUGS (2)
  1. COTRIMOXAZOLE [Suspect]
     Active Substance: SULFAMETHOXAZOLE\TRIMETHOPRIM
     Indication: PRODUCT USED FOR UNKNOWN INDICATION
     Route: 065
  2. BELIMUMAB [Concomitant]
     Active Substance: BELIMUMAB

REACTIONS (2)
  - Systemic lupus erythematosus [Recovered/Resolved]
  - Lupus enteritis [Recovered/Resolved]
